FAERS Safety Report 4493919-7 (Version None)
Quarter: 2004Q4

REPORT INFORMATION
  Report Type: 
  Country: None (occurrence: None)
  Receive Date: 20041102
  Receipt Date: 20041020
  Transmission Date: 20050328
  Serious: Yes (Hospitalization)
  Sender: FDA-Public Use
  Company Number: USA041081829

PATIENT
  Age: 60 Year
  Sex: Male
  Weight: 88 kg

DRUGS (2)
  1. HUMULIN 70/30 [Suspect]
     Indication: DIABETES MELLITUS
     Dosage: 45 U DAY
  2. AVANDIA [Concomitant]

REACTIONS (6)
  - CAROTID ARTERY OCCLUSION [None]
  - CROHN'S DISEASE [None]
  - DIABETES MELLITUS INADEQUATE CONTROL [None]
  - DIVERTICULITIS [None]
  - IRRITABLE BOWEL SYNDROME [None]
  - OVERWEIGHT [None]
